FAERS Safety Report 8243811-7 (Version None)
Quarter: 2012Q1

REPORT INFORMATION
  Report Type: 
  Country: None (occurrence: None)
  Receive Date: 20120329
  Receipt Date: 20120125
  Transmission Date: 20120608
  Serious: No
  Sender: FDA-Public Use
  Company Number: US-MYLANLABS-2012S1001422

PATIENT
  Sex: Male
  Weight: 77.11 kg

DRUGS (1)
  1. EMSAM [Suspect]
     Indication: DEPRESSION
     Dosage: CHANGES QD.
     Route: 062

REACTIONS (1)
  - RASH [None]
